FAERS Safety Report 11875581 (Version 1)
Quarter: 2015Q4

REPORT INFORMATION
  Report Type: Spontaneous
  Country: US (occurrence: US)
  Receive Date: 20151229
  Receipt Date: 20151229
  Transmission Date: 20160305
  Serious: No
  Sender: FDA-Public Use
  Company Number: PHEH2015US027202

PATIENT
  Sex: Female

DRUGS (1)
  1. VIVELLE-DOT [Suspect]
     Active Substance: ESTRADIOL
     Indication: PRODUCT USED FOR UNKNOWN INDICATION
     Dosage: 0.037 MG, UNK
     Route: 062

REACTIONS (6)
  - Anxiety [Unknown]
  - Rash [Unknown]
  - Crying [Unknown]
  - Chills [Unknown]
  - Breast enlargement [Unknown]
  - Migraine [Unknown]
